FAERS Safety Report 20857596 (Version 1)
Quarter: 2022Q2

REPORT INFORMATION
  Report Type: Spontaneous
  Country: SK (occurrence: SK)
  Receive Date: 20220521
  Receipt Date: 20220521
  Transmission Date: 20220721
  Serious: Yes (Hospitalization)
  Sender: FDA-Public Use
  Company Number: SK-BoehringerIngelheim-2022-BI-170764

PATIENT
  Sex: Female

DRUGS (1)
  1. NINTEDANIB [Suspect]
     Active Substance: NINTEDANIB
     Indication: Idiopathic pulmonary fibrosis

REACTIONS (1)
  - COVID-19 [Recovered/Resolved]
